FAERS Safety Report 13656195 (Version 1)
Quarter: 2017Q2

REPORT INFORMATION
  Report Type: Spontaneous
  Country: US (occurrence: US)
  Receive Date: 20170615
  Receipt Date: 20170615
  Transmission Date: 20170830
  Serious: Yes (Other)
  Sender: FDA-Public Use
  Company Number: US-ROCHE-1950720

PATIENT
  Sex: Female

DRUGS (1)
  1. BONIVA [Suspect]
     Active Substance: IBANDRONATE SODIUM
     Indication: OSTEOPOROSIS
     Route: 065
     Dates: start: 200701, end: 201012

REACTIONS (5)
  - Anxiety [Unknown]
  - Low turnover osteopathy [Unknown]
  - Femur fracture [Unknown]
  - Stress fracture [Unknown]
  - Emotional distress [Unknown]
